FAERS Safety Report 12779968 (Version 4)
Quarter: 2016Q4

REPORT INFORMATION
  Report Type: Spontaneous
  Country: US (occurrence: US)
  Receive Date: 20160926
  Receipt Date: 20161025
  Transmission Date: 20170207
  Serious: No
  Sender: FDA-Public Use
  Company Number: US-PFIZER INC-2016446607

PATIENT
  Age: 53 Year
  Sex: Female

DRUGS (1)
  1. IBRANCE [Suspect]
     Active Substance: PALBOCICLIB
     Indication: BREAST CANCER
     Dosage: 125 MG, CYCLIC, (TAKE ONE (1) CAPSULE BY MOUTH ONCE DAILY WITH FOOD 21 DAYS ON 7 DAYS OFF)
     Route: 048

REACTIONS (1)
  - Vomiting [Recovered/Resolved]
